FAERS Safety Report 20870950 (Version 2)
Quarter: 2022Q2

REPORT INFORMATION
  Report Type: Spontaneous
  Country: CA (occurrence: CA)
  Receive Date: 20220525
  Receipt Date: 20220630
  Transmission Date: 20220721
  Serious: Yes (Hospitalization, Other)
  Sender: FDA-Public Use
  Company Number: CA-CELLTRION INC.-2021CA013704

PATIENT

DRUGS (5)
  1. INFLECTRA [Suspect]
     Active Substance: INFLIXIMAB-DYYB
     Indication: Crohn^s disease
     Dosage: 400 MG, EVERY 4WEEK
     Route: 042
     Dates: start: 20210212, end: 20211119
  2. INFLECTRA [Suspect]
     Active Substance: INFLIXIMAB-DYYB
     Dosage: 400 MG, EVERY 6WEEK
     Route: 042
     Dates: start: 20220106
  3. INFLECTRA [Suspect]
     Active Substance: INFLIXIMAB-DYYB
     Dosage: 400 MG, EVERY 6WEEK
     Route: 042
     Dates: start: 20220218
  4. INFLECTRA [Suspect]
     Active Substance: INFLIXIMAB-DYYB
     Dosage: 400 MG, EVERY 6WEEK
     Route: 042
     Dates: start: 20220407
  5. INFLECTRA [Suspect]
     Active Substance: INFLIXIMAB-DYYB
     Dosage: 400 MG, EVERY 6WEEK
     Route: 042
     Dates: start: 20220513

REACTIONS (7)
  - Seizure [Unknown]
  - Drug level increased [Unknown]
  - Off label use [Unknown]
  - Discouragement [Unknown]
  - General physical health deterioration [Unknown]
  - Depression [Unknown]
  - Ear infection [Unknown]

NARRATIVE: CASE EVENT DATE: 20210101
